FAERS Safety Report 20814682 (Version 1)
Quarter: 2022Q2

REPORT INFORMATION
  Report Type: Report from Study
  Country: BR (occurrence: BR)
  Receive Date: 20220511
  Receipt Date: 20220511
  Transmission Date: 20220721
  Serious: Yes (Other)
  Sender: FDA-Public Use
  Company Number: BR-JNJFOC-20220509252

PATIENT
  Sex: Female
  Weight: 100 kg

DRUGS (1)
  1. REMICADE [Suspect]
     Active Substance: INFLIXIMAB
     Indication: Rheumatoid arthritis
     Dosage: ALSO REPORTED AS 2016?DOSAGE FORMS=VIALS
     Route: 042
     Dates: start: 20130527

REACTIONS (1)
  - Tuberculosis [Recovering/Resolving]
